FAERS Safety Report 16686121 (Version 1)
Quarter: 2019Q3

REPORT INFORMATION
  Report Type: Spontaneous
  Country: US (occurrence: US)
  Receive Date: 20190809
  Receipt Date: 20190809
  Transmission Date: 20191004
  Serious: Yes (Death, Other)
  Sender: FDA-Public Use
  Company Number: US-AMGEN-USASP2019123375

PATIENT
  Age: 75 Year
  Sex: Male

DRUGS (20)
  1. NPLATE [Suspect]
     Active Substance: ROMIPLOSTIM
     Indication: MYELODYSPLASTIC SYNDROME
  2. FUROSEMIDE. [Concomitant]
     Active Substance: FUROSEMIDE
     Dosage: 20 MILLIGRAM, QD
  3. FUROSEMIDE. [Concomitant]
     Active Substance: FUROSEMIDE
     Dosage: 40 MILLIGRAM, BID
  4. TRAZODONE [Concomitant]
     Active Substance: TRAZODONE HYDROCHLORIDE
  5. ASPIRIN [ACETYLSALICYLIC ACID] [Concomitant]
     Active Substance: ASPIRIN
  6. DARBEPOETIN ALFA [Suspect]
     Active Substance: DARBEPOETIN ALFA
     Indication: ANAEMIA
  7. FLOVENT [Concomitant]
     Active Substance: FLUTICASONE PROPIONATE
  8. POTASSIUM FLUORIDE [Concomitant]
  9. PRILOSEC [Concomitant]
     Active Substance: OMEPRAZOLE MAGNESIUM
  10. CRESTOR [Concomitant]
     Active Substance: ROSUVASTATIN CALCIUM
  11. VIAGRA [Concomitant]
     Active Substance: SILDENAFIL CITRATE
     Indication: ERECTILE DYSFUNCTION
  12. ALBUTEROL [SALBUTAMOL] [Concomitant]
     Active Substance: ALBUTEROL
  13. TAMSULOSIN [Concomitant]
     Active Substance: TAMSULOSIN
  14. DEXAMETHASONE. [Concomitant]
     Active Substance: DEXAMETHASONE
  15. GABAPENTIN. [Concomitant]
     Active Substance: GABAPENTIN
  16. NPLATE [Suspect]
     Active Substance: ROMIPLOSTIM
     Indication: CHRONIC MYELOMONOCYTIC LEUKAEMIA
     Route: 065
  17. PACERONE [Concomitant]
     Active Substance: AMIODARONE HYDROCHLORIDE
  18. DARBEPOETIN ALFA [Suspect]
     Active Substance: DARBEPOETIN ALFA
     Indication: THROMBOCYTOPENIA
     Route: 065
  19. PREDNISONE. [Concomitant]
     Active Substance: PREDNISONE
  20. NITROGLYCERINE [Concomitant]
     Active Substance: NITROGLYCERIN

REACTIONS (2)
  - Off label use [Unknown]
  - Death [Fatal]
